FAERS Safety Report 6199130-6 (Version None)
Quarter: 2009Q2

REPORT INFORMATION
  Report Type: 
  Country: None (occurrence: None)
  Receive Date: 20090522
  Receipt Date: 20090515
  Transmission Date: 20091009
  Serious: Yes (Disabling)
  Sender: FDA-Public Use
  Company Number: US-ROCHE-626975

PATIENT
  Sex: Female
  Weight: 52.2 kg

DRUGS (2)
  1. BONIVA [Suspect]
     Indication: OSTEOPOROSIS
     Route: 042
     Dates: start: 20090406, end: 20090406
  2. PROPYLTHIOURACIL [Concomitant]
     Indication: HYPERTHYROIDISM
     Dosage: START DATE: YEARS
     Route: 048

REACTIONS (2)
  - DEAFNESS [None]
  - EAR CONGESTION [None]
